FAERS Safety Report 25151053 (Version 3)
Quarter: 2025Q3

REPORT INFORMATION
  Report Type: Spontaneous
  Country: US (occurrence: US)
  Receive Date: 20250402
  Receipt Date: 20250703
  Transmission Date: 20251020
  Serious: No
  Sender: SANOFI AVENTIS
  Company Number: US-SA-2025SA093320

PATIENT
  Age: 52 Year
  Sex: Female

DRUGS (2)
  1. DUPIXENT [Suspect]
     Active Substance: DUPILUMAB
     Indication: Neurodermatitis
     Dosage: 300 MG, QOW
     Route: 058
  2. NEMLUVIO [Suspect]
     Active Substance: NEMOLIZUMAB-ILTO
     Route: 065

REACTIONS (6)
  - Swollen tongue [Unknown]
  - Eye pruritus [Unknown]
  - Skin burning sensation [Unknown]
  - Pruritus [Unknown]
  - Drug hypersensitivity [Unknown]
  - Arthralgia [Unknown]
